FAERS Safety Report 14460424 (Version 1)
Quarter: 2018Q1

REPORT INFORMATION
  Report Type: Spontaneous
  Country: US (occurrence: US)
  Receive Date: 20180130
  Receipt Date: 20180130
  Transmission Date: 20180509
  Serious: Yes (Disabling)
  Sender: FDA-Public Use
  Company Number: None

PATIENT
  Sex: Female
  Weight: 51.75 kg

DRUGS (3)
  1. LEVOFLOXACIN. [Suspect]
     Active Substance: LEVOFLOXACIN
     Indication: COLITIS
     Dosage: ?          OTHER STRENGTH:NO CLUE;QUANTITY:1 IV;OTHER FREQUENCY:ONCE; INTRAVENOUS (NOT OTHERWISE SPECIFIED) ?
     Route: 042
     Dates: end: 20171213
  2. XANAX XR [Concomitant]
     Active Substance: ALPRAZOLAM
  3. MAGNESIUM [Concomitant]
     Active Substance: MAGNESIUM

REACTIONS (12)
  - Paraesthesia [None]
  - Musculoskeletal disorder [None]
  - Tinnitus [None]
  - Muscle twitching [None]
  - Anxiety [None]
  - Formication [None]
  - Muscular weakness [None]
  - Heart rate irregular [None]
  - Tremor [None]
  - Arthropathy [None]
  - Pain [None]
  - Confusional state [None]

NARRATIVE: CASE EVENT DATE: 20171213
